FAERS Safety Report 20453303 (Version 1)
Quarter: 2022Q1

REPORT INFORMATION
  Report Type: Spontaneous
  Country: NL (occurrence: NL)
  Receive Date: 20220210
  Receipt Date: 20220210
  Transmission Date: 20220423
  Serious: Yes (Hospitalization, Other)
  Sender: FDA-Public Use
  Company Number: None

PATIENT
  Sex: Male
  Weight: 108 kg

DRUGS (1)
  1. DUPIXENT [Suspect]
     Active Substance: DUPILUMAB
     Indication: Chronic rhinosinusitis with nasal polyps
     Dosage: 300 MG, QOW
     Dates: start: 20211130, end: 20211231

REACTIONS (5)
  - Fluid retention [Recovering/Resolving]
  - Cardiac failure [Recovering/Resolving]
  - Sinus tachycardia [Recovering/Resolving]
  - Chest pain [Recovering/Resolving]
  - Eosinophil count increased [Recovering/Resolving]
